FAERS Safety Report 9441752 (Version 1)
Quarter: 2013Q3

REPORT INFORMATION
  Report Type: Other
  Country: GB (occurrence: GB)
  Receive Date: 20130806
  Receipt Date: 20130806
  Transmission Date: 20140515
  Serious: Yes (Congenital Anomaly)
  Sender: FDA-Public Use
  Company Number: GB-SUN PHARMACEUTICAL INDUSTRIES LTD-2013SUN01097

PATIENT
  Sex: 0

DRUGS (7)
  1. OLANZAPINE 10 MG TABLETS [Suspect]
     Indication: FOETAL EXPOSURE DURING PREGNANCY
     Dosage: 15 MG, OD
     Route: 064
  2. DIAZEPAM [Suspect]
     Indication: PRODUCT USED FOR UNKNOWN INDICATION
     Dosage: 10 MG, BID
     Route: 048
  3. DIAZEPAM [Suspect]
     Dosage: 10 MG, TID
     Route: 048
  4. OMEPRAZOLE [Suspect]
     Indication: PRODUCT USED FOR UNKNOWN INDICATION
     Dosage: 30 MG, UNK
     Route: 048
  5. PREGABALIN [Suspect]
     Indication: PAIN IN EXTREMITY
     Dosage: 300 MG, BID
     Route: 048
  6. SUBUTEX [Suspect]
     Indication: PRODUCT USED FOR UNKNOWN INDICATION
     Dosage: 14 MG, OD
     Route: 060
  7. ZOPICLONE [Suspect]
     Indication: PRODUCT USED FOR UNKNOWN INDICATION
     Dosage: 15 MG, UNK
     Route: 048

REACTIONS (7)
  - Limb reduction defect [Not Recovered/Not Resolved]
  - Congenital scoliosis [Not Recovered/Not Resolved]
  - Renal aplasia [Not Recovered/Not Resolved]
  - Oesophageal atresia [Unknown]
  - Congenital cardiovascular anomaly [Unknown]
  - Foetal malformation [Not Recovered/Not Resolved]
  - Foetal exposure during pregnancy [Unknown]
